FAERS Safety Report 16913136 (Version 2)
Quarter: 2019Q4

REPORT INFORMATION
  Report Type: Spontaneous
  Country: FR (occurrence: FR)
  Receive Date: 20191014
  Receipt Date: 20191220
  Transmission Date: 20200122
  Serious: Yes (Other)
  Sender: FDA-Public Use
  Company Number: FR-ROCHE-2433540

PATIENT
  Age: 78 Year
  Sex: Male
  Weight: 92 kg

DRUGS (4)
  1. BISOPROLOL [Concomitant]
     Active Substance: BISOPROLOL
  2. COBIMETINIB. [Suspect]
     Active Substance: COBIMETINIB
     Indication: PAPILLARY THYROID CANCER
     Dosage: 3 COMPRIME DE 20MG LE MATIN, 21 JOURS SUR 28
     Route: 048
     Dates: start: 20181018, end: 20181127
  3. LEVOTHYROXINE SODIQUE [Concomitant]
     Active Substance: LEVOTHYROXINE SODIUM
  4. MEKINIST [Suspect]
     Active Substance: TRAMETINIB DIMETHYL SULFOXIDE
     Indication: PAPILLARY THYROID CANCER
     Route: 048
     Dates: start: 20180919, end: 20181006

REACTIONS (1)
  - Macular fibrosis [Not Recovered/Not Resolved]

NARRATIVE: CASE EVENT DATE: 20190514
